FAERS Safety Report 6327264-1 (Version None)
Quarter: 2009Q3

REPORT INFORMATION
  Report Type: 
  Country: None (occurrence: None)
  Receive Date: 20090825
  Receipt Date: 20090819
  Transmission Date: 20100115
  Serious: Yes (Other)
  Sender: FDA-Public Use
  Company Number: US-BAYER-200911963BCC

PATIENT
  Age: 12 Year
  Sex: Female
  Weight: 52 kg

DRUGS (3)
  1. ALKA SELTZER PLUS EFFERVESCENT DAY [Suspect]
     Indication: NASOPHARYNGITIS
     Dosage: TOTAL DAILY DOSE: 2 DF
     Route: 048
     Dates: start: 20090621
  2. ALKA SELTZER PLUS EFFERVESCENT DAY [Suspect]
     Dosage: TOTAL DAILY DOSE: 2 DF
     Route: 048
     Dates: start: 20090622
  3. ALKA SELTZER PLUS EFFERVESCENT DAY [Suspect]
     Dosage: INGESTED 1 TABLET ON UNKNOWN DATES FOR TWO YEARS

REACTIONS (12)
  - ADVERSE DRUG REACTION [None]
  - AFFECT LABILITY [None]
  - AGITATION [None]
  - CONVULSION [None]
  - DEPRESSED LEVEL OF CONSCIOUSNESS [None]
  - DYSKINESIA [None]
  - DYSPNOEA [None]
  - HYPERHIDROSIS [None]
  - INCOHERENT [None]
  - MOANING [None]
  - PALPITATIONS [None]
  - SYNCOPE [None]
